FAERS Safety Report 8186279-1 (Version None)
Quarter: 2012Q1

REPORT INFORMATION
  Report Type: 
  Country: None (occurrence: None)
  Receive Date: 20120306
  Receipt Date: 20120227
  Transmission Date: 20120608
  Serious: Yes (Hospitalization)
  Sender: FDA-Public Use
  Company Number: US-BAYER-201029284NA

PATIENT
  Age: 41 Year
  Sex: Female
  Weight: 97.959 kg

DRUGS (6)
  1. LEXAPRO [Concomitant]
  2. PROPOXYPHENE HYDROCHLORIDE [Concomitant]
  3. DIAZEPAM [Concomitant]
  4. IBUPROFEN [Concomitant]
     Indication: PAIN
  5. YAZ [Suspect]
     Indication: CONTRACEPTION
     Route: 048
     Dates: start: 20071101, end: 20080701
  6. ASPIRIN [Concomitant]
     Indication: PAIN

REACTIONS (2)
  - PULMONARY EMBOLISM [None]
  - DEEP VEIN THROMBOSIS [None]
